FAERS Safety Report 9434656 (Version 1)
Quarter: 2013Q3

REPORT INFORMATION
  Report Type: Spontaneous
  Country: US (occurrence: US)
  Receive Date: 20130801
  Receipt Date: 20130801
  Transmission Date: 20140515
  Serious: No
  Sender: FDA-Public Use
  Company Number: US-009507513-1307USA015630

PATIENT
  Sex: Female
  Weight: 101.13 kg

DRUGS (1)
  1. NEXPLANON [Suspect]
     Dosage: 1 ROD
     Route: 059
     Dates: start: 20130426, end: 20130726

REACTIONS (2)
  - Device breakage [Unknown]
  - No adverse event [Unknown]
